FAERS Safety Report 24590345 (Version 2)
Quarter: 2025Q1

REPORT INFORMATION
  Report Type: Spontaneous
  Country: FR (occurrence: None)
  Receive Date: 20241107
  Receipt Date: 20250101
  Transmission Date: 20250408
  Serious: Yes (Other)
  Sender: ALEXION PHARMACEUTICALS
  Company Number: FR-AstraZeneca-CH-00737982A

PATIENT

DRUGS (6)
  1. SAPHNELO [Suspect]
     Active Substance: ANIFROLUMAB-FNIA
     Indication: Systemic lupus erythematosus
  2. SAPHNELO [Suspect]
     Active Substance: ANIFROLUMAB-FNIA
     Route: 058
  3. SAPHNELO [Suspect]
     Active Substance: ANIFROLUMAB-FNIA
  4. SAPHNELO [Suspect]
     Active Substance: ANIFROLUMAB-FNIA
     Route: 058
  5. MYCOPHENOLATE MOFETIL [Concomitant]
     Active Substance: MYCOPHENOLATE MOFETIL
     Indication: Systemic lupus erythematosus
     Route: 065
  6. MYCOPHENOLATE MOFETIL [Concomitant]
     Active Substance: MYCOPHENOLATE MOFETIL
     Route: 065

REACTIONS (1)
  - Neutropenia [Recovered/Resolved]
